FAERS Safety Report 8004493-2 (Version None)
Quarter: 2011Q4

REPORT INFORMATION
  Report Type: 
  Country: None (occurrence: None)
  Receive Date: 20111221
  Receipt Date: 20111221
  Transmission Date: 20120403
  Serious: Yes (Hospitalization)
  Sender: FDA-Public Use
  Company Number: None

PATIENT
  Age: 81 Year
  Sex: Male
  Weight: 87.9 kg

DRUGS (6)
  1. LISINOPRIL [Suspect]
     Indication: HYPERTENSION
     Dosage: 20MG DAILY PO CHRONIC
     Route: 048
  2. IBUPROFEN [Concomitant]
  3. AMLODIPINE [Concomitant]
  4. LANTUS [Concomitant]
  5. HYDROCODONE BITARTRATE AND ACETAMINOPHEN [Concomitant]
  6. RANITIDINE [Concomitant]

REACTIONS (4)
  - COUGH [None]
  - MUSCLE STRAIN [None]
  - RHABDOMYOLYSIS [None]
  - DISCOMFORT [None]
